FAERS Safety Report 5778583-9 (Version None)
Quarter: 2008Q2

REPORT INFORMATION
  Report Type: 
  Country: None (occurrence: None)
  Receive Date: 20080619
  Receipt Date: 20080611
  Transmission Date: 20081010
  Serious: Yes (Other)
  Sender: FDA-Public Use
  Company Number: JP-ASTRAZENECA-2008AC01545

PATIENT
  Age: 53 Year
  Sex: Female

DRUGS (17)
  1. MEROPENEM [Suspect]
     Indication: SEPSIS
  2. MEROPENEM [Suspect]
     Indication: BRONCHOPULMONARY ASPERGILLOSIS
  3. ALLOPURINOL [Suspect]
     Indication: PROPHYLAXIS
  4. TOSUFLOXACIN [Suspect]
     Indication: SEPSIS
  5. TOSUFLOXACIN [Suspect]
     Indication: BRONCHOPULMONARY ASPERGILLOSIS
  6. VANCOMYCIN [Suspect]
     Indication: SEPSIS
  7. VANCOMYCIN [Suspect]
     Indication: BRONCHOPULMONARY ASPERGILLOSIS
  8. FLUCONAZOLE [Suspect]
     Indication: SEPSIS
  9. FLUCONAZOLE [Suspect]
     Indication: BRONCHOPULMONARY ASPERGILLOSIS
  10. MICAFUNGIN [Suspect]
     Indication: SEPSIS
  11. MICAFUNGIN [Suspect]
     Indication: BRONCHOPULMONARY ASPERGILLOSIS
  12. CEFEPIME [Suspect]
     Indication: SEPSIS
  13. CEFEPIME [Suspect]
     Indication: BRONCHOPULMONARY ASPERGILLOSIS
  14. CYTARABINE [Suspect]
     Indication: ACUTE MYELOMONOCYTIC LEUKAEMIA
  15. IDARUBICIN HCL [Suspect]
     Indication: ACUTE MYELOMONOCYTIC LEUKAEMIA
  16. VORICONAZOLE [Suspect]
     Indication: SEPSIS
  17. VORICONAZOLE [Suspect]
     Indication: BRONCHOPULMONARY ASPERGILLOSIS

REACTIONS (1)
  - DRUG RASH WITH EOSINOPHILIA AND SYSTEMIC SYMPTOMS [None]
